FAERS Safety Report 6693349-3 (Version None)
Quarter: 2010Q2

REPORT INFORMATION
  Report Type: 
  Country: None (occurrence: None)
  Receive Date: 20100420
  Receipt Date: 20100407
  Transmission Date: 20101027
  Serious: Yes (Death, Life-Threatening, Hospitalization)
  Sender: FDA-Public Use
  Company Number: 2010EN000046

PATIENT
  Age: 60 Year
  Sex: Male
  Weight: 78.8 kg

DRUGS (15)
  1. ONCASPAR [Suspect]
     Indication: ACUTE LYMPHOCYTIC LEUKAEMIA
     Dosage: 2500 IU/KG:X1;IV ; 2500 IU/KG;IV
     Route: 042
     Dates: start: 20091113, end: 20091113
  2. ONCASPAR [Suspect]
     Indication: ACUTE LYMPHOCYTIC LEUKAEMIA
     Dosage: 2500 IU/KG:X1;IV ; 2500 IU/KG;IV
     Route: 042
     Dates: start: 20091217
  3. CALCIUM [Concomitant]
  4. CIPROFLOXACIN [Concomitant]
  5. DEXAMETHASONE [Concomitant]
  6. FLONASE [Concomitant]
  7. IMATINIB [Concomitant]
  8. PREVACID [Concomitant]
  9. CLARITIN [Concomitant]
  10. LORAZEPAM [Concomitant]
  11. METOPROLOL TARTRATE [Concomitant]
  12. MULTI-VITAMINS [Concomitant]
  13. COMPAZINE [Concomitant]
  14. SEPTRA [Concomitant]
  15. VALTREX [Concomitant]

REACTIONS (13)
  - ANOXIC ENCEPHALOPATHY [None]
  - ARTERIOSCLEROSIS CORONARY ARTERY [None]
  - BRAIN CONTUSION [None]
  - BRAIN DEATH [None]
  - BRONCHOPNEUMONIA [None]
  - CARDIAC ARREST [None]
  - COMA [None]
  - FALL [None]
  - FAT NECROSIS [None]
  - INTRACRANIAL PRESSURE INCREASED [None]
  - MYOCARDIAL FIBROSIS [None]
  - PULMONARY HAEMORRHAGE [None]
  - SUBARACHNOID HAEMORRHAGE [None]
